FAERS Safety Report 5177930-9 (Version None)
Quarter: 2006Q4

REPORT INFORMATION
  Report Type: 
  Country: None (occurrence: None)
  Receive Date: 20061208
  Receipt Date: 20061130
  Transmission Date: 20070319
  Serious: Yes (Other)
  Sender: FDA-Public Use
  Company Number: GXKR2006CH07844

PATIENT
  Age: 66 Year
  Sex: Male

DRUGS (2)
  1. OMED (NGX) (OMEPRAZOLE) [Suspect]
     Indication: GASTROOESOPHAGEAL REFLUX DISEASE
     Dosage: 20 MG, BID, ORAL
     Route: 048
     Dates: start: 20051101, end: 20060801
  2. XATRAL UNO(ALFUZOSIN) [Suspect]
     Indication: PROSTATISM
     Dosage: ORAL
     Route: 048
     Dates: start: 20060101, end: 20060801

REACTIONS (2)
  - PROSTATISM [None]
  - SYSTEMIC LUPUS ERYTHEMATOSUS [None]
